FAERS Safety Report 19405293 (Version 1)
Quarter: 2021Q2

REPORT INFORMATION
  Report Type: Spontaneous
  Country: DE (occurrence: DE)
  Receive Date: 20210611
  Receipt Date: 20210611
  Transmission Date: 20210717
  Serious: Yes (Hospitalization)
  Sender: FDA-Public Use
  Company Number: DE-TEVA-2021-DE-1920044

PATIENT
  Age: 80 Year
  Sex: Female

DRUGS (6)
  1. METAMIZOL [Concomitant]
     Active Substance: METAMIZOLE SODIUM
     Dosage: 160 GTT DAILY; 1?1?1?1, DROPS
     Route: 048
  2. HCT [Suspect]
     Active Substance: HYDROCHLOROTHIAZIDE
     Route: 048
  3. METFORMIN [Concomitant]
     Active Substance: METFORMIN HYDROCHLORIDE
     Dosage: 500 MG, 0.5?0?1?0
     Route: 048
  4. FERRO SANOL DUODENAL 100MG [Concomitant]
     Dosage: 100 MILLIGRAM DAILY; 1?0?0?0
     Route: 048
  5. ATORVASTATIN [Concomitant]
     Active Substance: ATORVASTATIN
     Dosage: 40 MILLIGRAM DAILY;  0?0?0?1
     Route: 048
  6. LANSOPRAZOL [Concomitant]
     Active Substance: LANSOPRAZOLE
     Dosage: 60 MILLIGRAM DAILY; 1?0?1?0
     Route: 048

REACTIONS (3)
  - Wound [Unknown]
  - Haematoma [Unknown]
  - Fall [Unknown]
